FAERS Safety Report 18037047 (Version 11)
Quarter: 2022Q1

REPORT INFORMATION
  Report Type: Spontaneous
  Country: AU (occurrence: AU)
  Receive Date: 20200717
  Receipt Date: 20220302
  Transmission Date: 20220424
  Serious: Yes (Hospitalization)
  Sender: FDA-Public Use
  Company Number: AU-DSJP-DSU-2020-120650

PATIENT
  Age: 83 Year
  Sex: Male
  Weight: 92 kg

DRUGS (20)
  1. OLMESARTAN MEDOXOMIL [Suspect]
     Active Substance: OLMESARTAN MEDOXOMIL
     Indication: Hypertension
     Dosage: 40 MG, QD
     Route: 048
     Dates: start: 199501, end: 20200615
  2. OLMESARTAN MEDOXOMIL [Suspect]
     Active Substance: OLMESARTAN MEDOXOMIL
     Dosage: 40 MG, QD
     Route: 048
     Dates: start: 20200620, end: 20200703
  3. OLAPARIB [Suspect]
     Active Substance: OLAPARIB
     Indication: Hormone-refractory prostate cancer
     Dosage: 300 MG, SINGLE FLUCTUATED DOSAGE
     Route: 048
     Dates: start: 20200526, end: 20200526
  4. OLAPARIB [Suspect]
     Active Substance: OLAPARIB
     Dosage: 300 MG, BID
     Route: 048
     Dates: start: 20200527, end: 20200615
  5. OLAPARIB [Suspect]
     Active Substance: OLAPARIB
     Dosage: 300 MG, ONCE, FLUCTUATED DOSAGE
     Route: 048
     Dates: start: 20200630, end: 20200702
  6. OLAPARIB [Suspect]
     Active Substance: OLAPARIB
     Dosage: 300 MG, SINGLE
     Route: 048
     Dates: start: 20200703, end: 20200703
  7. OLAPARIB [Suspect]
     Active Substance: OLAPARIB
     Dosage: STARTING DOSE AT 300 MG BID, FLUCTUATED DOSAGE AND FREQUENCY
     Route: 048
     Dates: start: 20200710, end: 20200712
  8. OLAPARIB [Suspect]
     Active Substance: OLAPARIB
     Dosage: 300 MG, BID
     Route: 048
     Dates: start: 20200721, end: 20200811
  9. PEMBROLIZUMAB [Suspect]
     Active Substance: PEMBROLIZUMAB
     Indication: Hormone-refractory prostate cancer
     Dosage: 200 MG, ONCE EVERY 3 WK
     Route: 042
     Dates: start: 20200526, end: 20200526
  10. PEMBROLIZUMAB [Suspect]
     Active Substance: PEMBROLIZUMAB
     Dosage: 200 MG, ONCE EVERY 3 WK
     Route: 042
     Dates: start: 20200630, end: 20200630
  11. PEMBROLIZUMAB [Suspect]
     Active Substance: PEMBROLIZUMAB
     Dosage: 200 MG, ONCE EVERY 3 WK
     Route: 042
     Dates: start: 20200721, end: 20200721
  12. AMLODIPINE [Suspect]
     Active Substance: AMLODIPINE BESYLATE
     Indication: Hypertension
     Dosage: 10 MG, QD
     Route: 048
     Dates: start: 201807, end: 20200615
  13. AMLODIPINE [Suspect]
     Active Substance: AMLODIPINE BESYLATE
     Dosage: 10 MG, QD
     Route: 048
     Dates: start: 20200620, end: 20200703
  14. CHOLSTAT                           /01341302/ [Concomitant]
     Indication: Hyperlipidaemia
     Dosage: 20 MG, QD
     Route: 048
     Dates: start: 199501
  15. PANTOPRAZOLE [Concomitant]
     Active Substance: PANTOPRAZOLE
     Indication: Acute myocardial infarction
     Dosage: 40 MG, QD
     Route: 048
     Dates: start: 201709
  16. APIXABAN [Concomitant]
     Active Substance: APIXABAN
     Indication: Duodenal ulcer perforation
     Dosage: 5 MG, QD
     Route: 048
     Dates: start: 201809, end: 20200618
  17. LATANOPROST\TIMOLOL MALEATE [Concomitant]
     Active Substance: LATANOPROST\TIMOLOL MALEATE
     Indication: Open angle glaucoma
     Dosage: 4 APPLICATION, QD
     Route: 047
     Dates: start: 201601
  18. ACETAMINOPHEN [Concomitant]
     Active Substance: ACETAMINOPHEN
     Indication: Arthralgia
     Dosage: 3000 MG, PRN
     Route: 048
     Dates: start: 20200613
  19. DENOSUMAB [Concomitant]
     Active Substance: DENOSUMAB
     Indication: Prophylaxis
     Dosage: 120 MG, ONCE EVERY 1 MO
     Route: 058
     Dates: start: 201906
  20. LEUPROLIDE ACETATE [Concomitant]
     Active Substance: LEUPROLIDE ACETATE
     Indication: Prostate cancer
     Dosage: 45 MG, OTHER
     Route: 030
     Dates: start: 201807

REACTIONS (2)
  - Atrial fibrillation [Recovered/Resolved]
  - Hypotension [Recovered/Resolved]

NARRATIVE: CASE EVENT DATE: 20200616
